FAERS Safety Report 8426007-5 (Version None)
Quarter: 2012Q2

REPORT INFORMATION
  Report Type: 
  Country: None (occurrence: None)
  Receive Date: 20120611
  Receipt Date: 20120530
  Transmission Date: 20120825
  Serious: Yes (Life-Threatening, Other)
  Sender: FDA-Public Use
  Company Number: US-JNJFOC-20120312630

PATIENT
  Sex: Male
  Weight: 140 kg

DRUGS (40)
  1. PREDNISONE TAB [Suspect]
     Indication: PROSTATE CANCER METASTATIC
     Route: 048
     Dates: start: 20120423
  2. EPLERENONE [Concomitant]
     Indication: OEDEMA
     Route: 048
     Dates: start: 20111119
  3. ALLOPURINOL [Concomitant]
     Route: 065
     Dates: start: 20120324, end: 20120412
  4. PROAIR HFA [Concomitant]
     Indication: CHRONIC OBSTRUCTIVE PULMONARY DISEASE
     Dosage: 2 PUFFS EVERY 4-6 HOURS
     Route: 045
     Dates: start: 20120412
  5. NOVOLOG [Concomitant]
     Indication: DIABETES MELLITUS
     Dosage: EVERY MORNING
     Route: 058
     Dates: start: 20070801
  6. VANTAS [Concomitant]
     Route: 065
     Dates: start: 20090716
  7. TORSEMIDE [Concomitant]
     Indication: HYPERTENSION
     Route: 048
     Dates: start: 20000901, end: 20100128
  8. TORSEMIDE [Concomitant]
     Route: 048
     Dates: start: 20100128, end: 20100305
  9. TORSEMIDE [Concomitant]
     Route: 048
     Dates: start: 20110811
  10. PREDNISONE TAB [Suspect]
     Route: 048
     Dates: start: 20090716
  11. SIMCOR [Concomitant]
     Indication: HYPERLIPIDAEMIA
     Route: 048
     Dates: start: 20080801
  12. ALLOPURINOL [Concomitant]
     Indication: HYPERURICAEMIA
     Route: 065
     Dates: start: 20120412, end: 20120518
  13. LANTUS [Concomitant]
     Indication: DIABETES MELLITUS
     Route: 058
     Dates: start: 20070801
  14. ABIRATERONE ACETATE [Suspect]
     Route: 048
  15. CLARINEX [Concomitant]
     Indication: MULTIPLE ALLERGIES
     Route: 048
     Dates: start: 20060401
  16. SINGULAIR [Concomitant]
     Indication: MULTIPLE ALLERGIES
     Route: 048
     Dates: start: 20060401
  17. TORSEMIDE [Concomitant]
     Route: 048
     Dates: start: 20100305, end: 20101230
  18. ALLOPURINOL [Concomitant]
     Indication: PROPHYLAXIS
     Route: 065
     Dates: start: 20120412, end: 20120518
  19. AVAPRO [Concomitant]
     Indication: HYPERTENSION
     Route: 065
     Dates: start: 20020101, end: 20111006
  20. AVAPRO [Concomitant]
     Route: 065
     Dates: start: 20020101, end: 20111230
  21. LASIX [Concomitant]
     Indication: OEDEMA PERIPHERAL
     Route: 048
     Dates: start: 20110501, end: 20111202
  22. ALBUTEROL [Concomitant]
     Indication: CHRONIC OBSTRUCTIVE PULMONARY DISEASE
     Route: 045
     Dates: start: 20120412
  23. ABIRATERONE ACETATE [Suspect]
     Indication: PROSTATE CANCER METASTATIC
     Route: 048
     Dates: start: 20090716, end: 20120419
  24. ASPIRIN [Concomitant]
     Indication: CARDIOVASCULAR EVENT PROPHYLAXIS
     Route: 048
     Dates: start: 20000101
  25. CARTIA XT [Concomitant]
     Indication: HYPERTENSION
     Route: 048
     Dates: start: 20010701
  26. VANTAS [Concomitant]
     Indication: CANCER HORMONAL THERAPY
     Route: 065
     Dates: start: 20061001
  27. TORSEMIDE [Concomitant]
     Route: 048
     Dates: start: 20101230, end: 20110811
  28. ALLOPURINOL [Concomitant]
     Route: 065
     Dates: start: 20120324, end: 20120412
  29. ALBUTEROL [Concomitant]
     Indication: BRONCHITIS
     Route: 045
     Dates: start: 20120412
  30. CALTRATE +D [Concomitant]
     Indication: MEDICAL DIET
     Route: 048
     Dates: start: 20120312, end: 20120518
  31. CALTRATE +D [Concomitant]
     Route: 048
     Dates: start: 20120312, end: 20120518
  32. IBUPROFEN (ADVIL) [Concomitant]
     Indication: MUSCULOSKELETAL PAIN
     Route: 048
     Dates: start: 20110901, end: 20111202
  33. TRAMADOL HCL [Concomitant]
     Indication: CANCER PAIN
     Route: 048
     Dates: start: 20111121, end: 20111230
  34. COREG [Concomitant]
     Indication: CORONARY ARTERY DISEASE
     Route: 048
     Dates: start: 20050901
  35. NOVOLOG [Concomitant]
     Dosage: EVERY EVENING
     Route: 058
     Dates: start: 20070801
  36. PLAVIX [Concomitant]
     Indication: ARTERIOSCLEROSIS
     Route: 048
     Dates: start: 20000901, end: 20120508
  37. TETRACYCLINE [Concomitant]
     Indication: ROSACEA
     Route: 048
     Dates: start: 19970131
  38. CALTRATE +D [Concomitant]
     Route: 048
     Dates: start: 20100128, end: 20111202
  39. CALTRATE +D [Concomitant]
     Route: 048
     Dates: start: 20100128, end: 20111202
  40. IBUPROFEN (ADVIL) [Concomitant]
     Indication: BACK PAIN
     Route: 048
     Dates: start: 20110901, end: 20111202

REACTIONS (2)
  - BLOOD URIC ACID INCREASED [None]
  - HYPERURICAEMIA [None]
